FAERS Safety Report 15940286 (Version 2)
Quarter: 2019Q1

REPORT INFORMATION
  Report Type: Spontaneous
  Country: US (occurrence: US)
  Receive Date: 20190208
  Receipt Date: 20190223
  Transmission Date: 20190417
  Serious: Yes (Other)
  Sender: FDA-Public Use
  Company Number: US-ASTRAZENECA-2018SF27065

PATIENT
  Sex: Female

DRUGS (24)
  1. PREVACID [Suspect]
     Active Substance: LANSOPRAZOLE
     Route: 065
     Dates: start: 200205, end: 200308
  2. FLONASE [Concomitant]
     Active Substance: FLUTICASONE PROPIONATE
  3. AMBIEN [Concomitant]
     Active Substance: ZOLPIDEM TARTRATE
  4. BENZONATATE. [Concomitant]
     Active Substance: BENZONATATE
  5. LIQUIBID [Concomitant]
     Active Substance: GUAIFENESIN
  6. LEVAQUIN [Concomitant]
     Active Substance: LEVOFLOXACIN
  7. TEMAZEPAM. [Concomitant]
     Active Substance: TEMAZEPAM
  8. DRONABINOL. [Concomitant]
     Active Substance: DRONABINOL
  9. NEXIUM [Suspect]
     Active Substance: ESOMEPRAZOLE MAGNESIUM
     Route: 048
     Dates: start: 200205, end: 200308
  10. TOPAMAX [Concomitant]
     Active Substance: TOPIRAMATE
  11. PRILOSEC [Suspect]
     Active Substance: OMEPRAZOLE MAGNESIUM
     Route: 048
     Dates: start: 20020513, end: 20100101
  12. HUMIRA [Concomitant]
     Active Substance: ADALIMUMAB
  13. NEXIUM [Suspect]
     Active Substance: ESOMEPRAZOLE MAGNESIUM
     Route: 048
     Dates: start: 20031218, end: 20170323
  14. PRILOSEC [Suspect]
     Active Substance: OMEPRAZOLE MAGNESIUM
     Route: 048
     Dates: start: 200205, end: 200308
  15. PRILOSEC [Suspect]
     Active Substance: OMEPRAZOLE MAGNESIUM
     Route: 048
     Dates: start: 20020513
  16. PREMARIN [Concomitant]
     Active Substance: ESTROGENS, CONJUGATED
  17. ZITHROMAX [Concomitant]
     Active Substance: AZITHROMYCIN DIHYDRATE
  18. GABAPENTIN. [Concomitant]
     Active Substance: GABAPENTIN
  19. NEXIUM [Suspect]
     Active Substance: ESOMEPRAZOLE MAGNESIUM
     Route: 048
     Dates: start: 20031218
  20. ZYRTEC [Concomitant]
     Active Substance: CETIRIZINE HYDROCHLORIDE
  21. NADOLOL. [Concomitant]
     Active Substance: NADOLOL
  22. MOVANTIK [Concomitant]
     Active Substance: NALOXEGOL OXALATE
  23. AMITRIPTYLINE [Concomitant]
     Active Substance: AMITRIPTYLINE
  24. MARINOL [Concomitant]
     Active Substance: DRONABINOL

REACTIONS (3)
  - Renal failure [Unknown]
  - Renal injury [Unknown]
  - Chronic kidney disease [Unknown]
